FAERS Safety Report 24766750 (Version 2)
Quarter: 2025Q1

REPORT INFORMATION
  Report Type: Spontaneous
  Country: US (occurrence: US)
  Receive Date: 20241223
  Receipt Date: 20250116
  Transmission Date: 20250408
  Serious: No
  Sender: MERZ
  Company Number: US-Merz Pharmaceuticals GmbH-2024120000122

PATIENT

DRUGS (6)
  1. XEOMIN [Suspect]
     Active Substance: INCOBOTULINUMTOXINA
     Indication: Skin cosmetic procedure
     Dosage: 4 INTERNATIONAL UNIT
     Route: 058
     Dates: start: 20241107, end: 20241107
  2. XEOMIN [Suspect]
     Active Substance: INCOBOTULINUMTOXINA
     Dosage: 4 INTERNATIONAL UNIT
     Dates: start: 20241212, end: 20241212
  3. XEOMIN [Suspect]
     Active Substance: INCOBOTULINUMTOXINA
  4. XEOMIN [Suspect]
     Active Substance: INCOBOTULINUMTOXINA
  5. XEOMIN [Suspect]
     Active Substance: INCOBOTULINUMTOXINA
  6. XEOMIN [Suspect]
     Active Substance: INCOBOTULINUMTOXINA

REACTIONS (2)
  - Drug ineffective [Recovered/Resolved]
  - Off label use [Unknown]

NARRATIVE: CASE EVENT DATE: 20240101
